FAERS Safety Report 25194946 (Version 1)
Quarter: 2025Q2

REPORT INFORMATION
  Report Type: Spontaneous
  Country: AU (occurrence: AU)
  Receive Date: 20250415
  Receipt Date: 20250415
  Transmission Date: 20250717
  Serious: Yes (Other)
  Sender: Alvotech
  Company Number: None

PATIENT
  Age: 16 Year
  Sex: Female

DRUGS (2)
  1. ADALIMUMAB [Suspect]
     Active Substance: ADALIMUMAB
     Indication: Toxic epidermal necrolysis
     Route: 058
  2. LAMOTRIGINE [Suspect]
     Active Substance: LAMOTRIGINE
     Indication: Product used for unknown indication
     Route: 065

REACTIONS (6)
  - Off label use [Unknown]
  - Mucosal inflammation [Recovered/Resolved]
  - Toxic epidermal necrolysis [Recovered/Resolved]
  - Vulvar erosion [Recovered/Resolved]
  - Hepatitis [Recovered/Resolved]
  - Conjunctivitis [Recovered/Resolved]
